FAERS Safety Report 14892278 (Version 2)
Quarter: 2021Q2

REPORT INFORMATION
  Report Type: Spontaneous
  Country: US (occurrence: US)
  Receive Date: 20180514
  Receipt Date: 20210513
  Transmission Date: 20210716
  Serious: No
  Sender: FDA-Public Use
  Company Number: US-UNITED THERAPEUTICS-UNT-2018-001050

PATIENT
  Age: 44 Year
  Sex: Female
  Weight: 58.05 kg

DRUGS (8)
  1. REMODULIN [Suspect]
     Active Substance: TREPROSTINIL
     Indication: PULMONARY ARTERIAL HYPERTENSION
     Dosage: 0.089 ?G/KG, CONTINUING
     Route: 041
     Dates: start: 20180119
  2. REMODULIN [Suspect]
     Active Substance: TREPROSTINIL
     Dosage: 0.093 ?G/KG, CONTINUING
     Route: 041
     Dates: start: 2018
  3. LETAIRIS [Concomitant]
     Active Substance: AMBRISENTAN
     Indication: PRODUCT USED FOR UNKNOWN INDICATION
     Route: 065
  4. ADCIRCA [Concomitant]
     Active Substance: TADALAFIL
     Indication: PRODUCT USED FOR UNKNOWN INDICATION
     Route: 065
  5. REMODULIN [Suspect]
     Active Substance: TREPROSTINIL
     Dosage: 0.089 ?G/KG, CONTINUING
     Route: 041
     Dates: start: 2018
  6. REMODULIN [Suspect]
     Active Substance: TREPROSTINIL
     Dosage: 0.09 ?G/KG, CONTINUING
     Route: 041
     Dates: start: 2018
  7. REMODULIN [Suspect]
     Active Substance: TREPROSTINIL
     Indication: PULMONARY HYPERTENSION
     Dosage: 0.087 ?G/KG, CONTINUING
     Route: 041
     Dates: start: 20180108
  8. WARFARIN [Concomitant]
     Active Substance: WARFARIN
     Indication: PRODUCT USED FOR UNKNOWN INDICATION
     Route: 065

REACTIONS (11)
  - Fatigue [Unknown]
  - Asthenia [Unknown]
  - Influenza [Recovering/Resolving]
  - Dermatitis contact [Unknown]
  - Malaise [Unknown]
  - Dizziness [Unknown]
  - Blood pressure decreased [Unknown]
  - Injection site irritation [Unknown]
  - Hypoaesthesia [Unknown]
  - Peripheral swelling [Unknown]
  - Migraine [Unknown]

NARRATIVE: CASE EVENT DATE: 201801
